FAERS Safety Report 8491051 (Version 2)
Quarter: 2012Q4

REPORT INFORMATION
  Report Type: 
  Country: RU (occurrence: RU)
  Receive Date: 20120403
  Receipt Date: 20120912
  Transmission Date: 20130627
  Serious: Yes (Hospitalization)
  Sender: FDA-Public Use
  Company Number: RU-BAYER-2012-030013

PATIENT
  Age: 36 Year
  Sex: Female

DRUGS (2)
  1. MIRENA [Suspect]
     Indication: MENORRHAGIA
     Dosage: 20 mcg/24hr, CONT
     Route: 015
     Dates: start: 2008
  2. MIRENA [Suspect]
     Indication: ENDOMETRIAL HYPERPLASIA

REACTIONS (6)
  - Haemorrhoids [Recovered/Resolved]
  - Pain [Recovered/Resolved]
  - Haemorrhoids [Recovered/Resolved]
  - Pain [Recovered/Resolved]
  - Haemorrhoids [Recovered/Resolved]
  - Pain [Recovered/Resolved]
